FAERS Safety Report 12342776 (Version 2)
Quarter: 2016Q2

REPORT INFORMATION
  Report Type: Report from Study
  Country: US (occurrence: US)
  Receive Date: 20160506
  Receipt Date: 20160628
  Transmission Date: 20160815
  Serious: Yes (Hospitalization)
  Sender: FDA-Public Use
  Company Number: US-EISAI MEDICAL RESEARCH-EC-2015-011191

PATIENT
  Sex: Male
  Weight: 70.45 kg

DRUGS (11)
  1. IMODIUM [Concomitant]
     Active Substance: LOPERAMIDE HYDROCHLORIDE
  2. LISINOPRIL. [Concomitant]
     Active Substance: LISINOPRIL
  3. MULTIVITAMIN [Concomitant]
     Active Substance: VITAMINS
  4. LENVIMA [Suspect]
     Active Substance: LENVATINIB
     Route: 048
     Dates: start: 20160210, end: 20160519
  5. TUMS [Concomitant]
     Active Substance: CALCIUM CARBONATE
  6. IRON [Concomitant]
     Active Substance: IRON
  7. SYNTHROID [Concomitant]
     Active Substance: LEVOTHYROXINE SODIUM
     Dosage: 100 MCG
  8. CHOLESTYRAMINE. [Concomitant]
     Active Substance: CHOLESTYRAMINE
  9. LOMOTIL [Concomitant]
     Active Substance: ATROPINE SULFATE\DIPHENOXYLATE HYDROCHLORIDE
  10. LENVIMA [Suspect]
     Active Substance: LENVATINIB
     Route: 048
     Dates: start: 20160613
  11. LENVIMA [Suspect]
     Active Substance: LENVATINIB
     Indication: THYROID CANCER
     Route: 048
     Dates: start: 20150928, end: 20160209

REACTIONS (11)
  - Diarrhoea [Unknown]
  - Dehydration [Recovered/Resolved]
  - Decreased appetite [Unknown]
  - Hypomagnesaemia [Recovered/Resolved]
  - Asthenia [Recovered/Resolved]
  - Weight decreased [Unknown]
  - Oral pain [Unknown]
  - Fatigue [Unknown]
  - Hyponatraemia [Recovered/Resolved]
  - Blood pressure increased [Recovering/Resolving]
  - Candida infection [Unknown]

NARRATIVE: CASE EVENT DATE: 2015
